FAERS Safety Report 15666053 (Version 1)
Quarter: 2018Q4

REPORT INFORMATION
  Report Type: Spontaneous
  Country: US (occurrence: US)
  Receive Date: 20181128
  Receipt Date: 20181128
  Transmission Date: 20190205
  Serious: No
  Sender: FDA-Public Use
  Company Number: US-UNITED THERAPEUTICS-UNT-2018-019327

PATIENT
  Age: 52 Year
  Sex: Female
  Weight: 103.4 kg

DRUGS (4)
  1. TYVASO [Suspect]
     Active Substance: TREPROSTINIL
     Indication: PULMONARY ARTERIAL HYPERTENSION
     Dosage: 18-54 ?G, QID
     Dates: start: 20181107
  2. TYVASO [Suspect]
     Active Substance: TREPROSTINIL
     Dosage: 6 ?G, UNK
  3. ADCIRCA [Concomitant]
     Active Substance: TADALAFIL
     Indication: PULMONARY ARTERIAL HYPERTENSION
     Dosage: UNK
     Route: 065
  4. TYVASO [Suspect]
     Active Substance: TREPROSTINIL
     Dosage: 18 ?G, UNK

REACTIONS (7)
  - Dizziness [Not Recovered/Not Resolved]
  - Vomiting [Not Recovered/Not Resolved]
  - Back pain [Unknown]
  - Off label use [Unknown]
  - Nausea [Not Recovered/Not Resolved]
  - Cough [Unknown]
  - Fatigue [Unknown]

NARRATIVE: CASE EVENT DATE: 201811
